FAERS Safety Report 15355720 (Version 2)
Quarter: 2018Q3

REPORT INFORMATION
  Report Type: Spontaneous
  Country: JP (occurrence: JP)
  Receive Date: 20180906
  Receipt Date: 20180917
  Transmission Date: 20181010
  Serious: Yes (Death, Life-Threatening)
  Sender: FDA-Public Use
  Company Number: JP-ROCHE-2179738

PATIENT
  Age: 59 Year
  Sex: Male
  Weight: 77 kg

DRUGS (9)
  1. FOSCAVIR [Suspect]
     Active Substance: FOSCARNET SODIUM
     Indication: CYTOMEGALOVIRUS INFECTION
     Route: 041
     Dates: start: 20180322, end: 20180325
  2. CEFON (JAPAN) [Concomitant]
     Indication: PERITONITIS
     Route: 041
     Dates: start: 20180208, end: 20180213
  3. DENOSINE (JAPAN) [Suspect]
     Active Substance: GANCICLOVIR
     Indication: CYTOMEGALOVIRUS ENTEROCOLITIS
     Route: 041
     Dates: start: 20180209, end: 20180221
  4. FUROSEMIDE. [Concomitant]
     Active Substance: FUROSEMIDE
     Indication: CARDIAC FAILURE
     Route: 042
     Dates: start: 20180131, end: 20180213
  5. PRODIF [Concomitant]
     Active Substance: FOSFLUCONAZOLE
     Indication: FUNGAL INFECTION
     Route: 041
     Dates: start: 20180211, end: 20180218
  6. CEFEPIME DIHYDROCHLORIDE [Concomitant]
     Active Substance: CEFEPIME HYDROCHLORIDE
     Indication: PERITONITIS
     Route: 041
     Dates: start: 20180214, end: 20180226
  7. PREDONINE [Concomitant]
     Active Substance: PREDNISOLONE
     Indication: ADRENAL INSUFFICIENCY
     Route: 041
     Dates: start: 20180216, end: 20180224
  8. MEYLON (JAPAN) [Concomitant]
     Indication: METABOLIC ACIDOSIS
     Route: 042
     Dates: start: 20180105, end: 20180214
  9. SOLU?CORTEF [Concomitant]
     Active Substance: HYDROCORTISONE SODIUM SUCCINATE
     Indication: ADRENAL INSUFFICIENCY
     Route: 041
     Dates: start: 20180214, end: 20180215

REACTIONS (4)
  - Multiple organ dysfunction syndrome [Fatal]
  - Pancytopenia [Not Recovered/Not Resolved]
  - Toxic epidermal necrolysis [Fatal]
  - Septic shock [Fatal]

NARRATIVE: CASE EVENT DATE: 20180326
